FAERS Safety Report 9802506 (Version 1)
Quarter: 2014Q1

REPORT INFORMATION
  Report Type: Spontaneous
  Country: CH (occurrence: CH)
  Receive Date: 20140107
  Receipt Date: 20140107
  Transmission Date: 20141002
  Serious: Yes (Hospitalization)
  Sender: FDA-Public Use
  Company Number: CH-ROCHE-1327471

PATIENT
  Age: 43 Year
  Sex: Female

DRUGS (13)
  1. XELODA [Suspect]
     Indication: PRODUCT USED FOR UNKNOWN INDICATION
     Dosage: COATED TABLET FILMS
     Route: 048
     Dates: start: 20130925
  2. FORTECORTIN [Suspect]
     Indication: PRODUCT USED FOR UNKNOWN INDICATION
     Route: 048
     Dates: start: 20130830
  3. NEXIUM [Concomitant]
     Route: 048
  4. LYRICA [Concomitant]
     Route: 048
  5. FLOXYFRAL [Concomitant]
     Route: 048
  6. TRITTICO [Concomitant]
     Route: 048
  7. STILNOX [Concomitant]
     Route: 048
  8. DIFLUCAN [Concomitant]
     Route: 048
  9. BACTRIM [Concomitant]
     Dosage: 1 DF DOSAGE FORM,?STRENGTH: 800MG/160MG
     Route: 048
  10. LAXOBERON [Concomitant]
     Dosage: LIQUID DROPS,?10GTT DROPS
     Route: 048
  11. XANAX [Concomitant]
     Route: 048
  12. CLEXANE [Concomitant]
     Dosage: STRENGTH : 100MG/ML
     Route: 058
  13. VINORELBINE [Concomitant]
     Dosage: DAY 1-8, EVERY 21 DAYS
     Route: 042
     Dates: start: 20130415

REACTIONS (2)
  - Myopathy [Not Recovered/Not Resolved]
  - Muscular weakness [Not Recovered/Not Resolved]
